FAERS Safety Report 4864780-3 (Version None)
Quarter: 2005Q4

REPORT INFORMATION
  Report Type: 
  Country: None (occurrence: None)
  Receive Date: 20051222
  Receipt Date: 20051005
  Transmission Date: 20060501
  Serious: Yes (Disabling)
  Sender: FDA-Public Use
  Company Number: US-MERCK-0510USA04103

PATIENT
  Age: 52 Year
  Sex: Female
  Weight: 79 kg

DRUGS (1)
  1. VIOXX [Suspect]
     Indication: PAIN
     Route: 048
     Dates: start: 20021001, end: 20040101

REACTIONS (5)
  - ANGINA PECTORIS [None]
  - HEART RATE IRREGULAR [None]
  - MENTAL DISORDER [None]
  - PAIN [None]
  - TACHYCARDIA [None]
